FAERS Safety Report 13276009 (Version 1)
Quarter: 2017Q1

REPORT INFORMATION
  Report Type: Spontaneous
  Country: US (occurrence: US)
  Receive Date: 20170227
  Receipt Date: 20170227
  Transmission Date: 20170428
  Serious: No
  Sender: FDA-Public Use
  Company Number: None

PATIENT
  Age: 25 Year
  Sex: Male
  Weight: 77.8 kg

DRUGS (1)
  1. MIRTAZAPINE. [Suspect]
     Active Substance: MIRTAZAPINE
     Indication: DEPRESSION
     Dosage: MG PO
     Route: 048
     Dates: start: 20160908, end: 20160908

REACTIONS (8)
  - Cough [None]
  - Pharyngeal oedema [None]
  - Pruritus [None]
  - Dyspnoea [None]
  - Urticaria [None]
  - Rash [None]
  - Wheezing [None]
  - Angioedema [None]

NARRATIVE: CASE EVENT DATE: 20160916
